FAERS Safety Report 15948513 (Version 2)
Quarter: 2019Q1

REPORT INFORMATION
  Report Type: Report from Study
  Country: DE (occurrence: DE)
  Receive Date: 20190212
  Receipt Date: 20190219
  Transmission Date: 20190417
  Serious: Yes (Hospitalization)
  Sender: FDA-Public Use
  Company Number: DE-ACCORD-106499

PATIENT
  Age: 49 Year
  Sex: Female
  Weight: 72 kg

DRUGS (7)
  1. PERTUZUMAB. [Suspect]
     Active Substance: PERTUZUMAB
     Indication: PRODUCT USED FOR UNKNOWN INDICATION
     Dosage: DATE OF MOST RECENT DOSE OF PERTUZUMAB AND TRASTUZUMAB PRIOR TO SECOND EPISODE OF ANAEMIA ON 10/MAY/
     Route: 042
     Dates: start: 20160831
  2. DOCETAXEL. [Suspect]
     Active Substance: DOCETAXEL
     Indication: BREAST CANCER METASTATIC
     Dosage: TREATMENT PRIOR TO SAE: 31/AUG/2016
     Route: 042
     Dates: start: 20160810
  3. PERTUZUMAB. [Suspect]
     Active Substance: PERTUZUMAB
     Indication: BREAST CANCER METASTATIC
     Dosage: 420 MG FROM 31-AUG-2016,TREATMENT PRIOR TO SAE: 31/AUG/2016
     Route: 042
     Dates: start: 20160805
  4. HERCEPTIN [Suspect]
     Active Substance: TRASTUZUMAB
     Indication: BREAST CANCER METASTATIC
     Dosage: DATE OF MOST RECENT DOSE OF PERTUZUMAB AND TRASTUZUMAB PRIOR TO SECOND EPISODE OF ANAEMIA ON 10/MAY/
     Route: 042
     Dates: start: 20160831
  5. A/A-TREHALOSE 2H2O/HISTIDIN/HISTIDIN-HCL/POLYSORBAT 20/TRASTUZUMAB [Suspect]
     Active Substance: TRASTUZUMAB
     Indication: BREAST CANCER METASTATIC
     Dosage: TREATMENT PRIOR TO SAE: 31/AUG/2016
     Route: 042
     Dates: start: 20160805
  6. PANTOPRAZOLE [Concomitant]
     Active Substance: PANTOPRAZOLE
     Indication: PROPHYLAXIS
     Route: 048
  7. TAVEGIL [Concomitant]
     Active Substance: CLEMASTINE FUMARATE
     Indication: HYPERSENSITIVITY
     Route: 048

REACTIONS (10)
  - Skin toxicity [Recovered/Resolved]
  - Anaemia [Recovered/Resolved]
  - Nasopharyngitis [Not Recovered/Not Resolved]
  - Alopecia [Not Recovered/Not Resolved]
  - Pruritus [Not Recovered/Not Resolved]
  - Nail toxicity [Not Recovered/Not Resolved]
  - Neutropenia [Recovered/Resolved]
  - Diarrhoea [Not Recovered/Not Resolved]
  - Epistaxis [Not Recovered/Not Resolved]
  - Febrile neutropenia [Not Recovered/Not Resolved]

NARRATIVE: CASE EVENT DATE: 20160810
